FAERS Safety Report 23431656 (Version 1)
Quarter: 2024Q1

REPORT INFORMATION
  Report Type: Spontaneous
  Country: IT (occurrence: IT)
  Receive Date: 20240123
  Receipt Date: 20240123
  Transmission Date: 20240409
  Serious: Yes (Other)
  Sender: FDA-Public Use
  Company Number: None

PATIENT

DRUGS (3)
  1. CISPLATIN [Suspect]
     Active Substance: CISPLATIN
     Indication: Cholangiocarcinoma
     Dosage: 25 MILLIGRAM/SQ. METER
     Route: 042
     Dates: start: 20230228, end: 20230704
  2. DURVALUMAB [Suspect]
     Active Substance: DURVALUMAB
     Indication: Cholangiocarcinoma
     Dosage: 1500 MILLIGRAM/SQ. METER
     Route: 042
     Dates: start: 20230323, end: 20230704
  3. GEMCITABINE [Suspect]
     Active Substance: GEMCITABINE
     Indication: Product used for unknown indication
     Dosage: 1000 MILLIGRAM/SQ. METER
     Route: 042

REACTIONS (3)
  - Hyperamylasaemia [Unknown]
  - Pancreatitis acute [Not Recovered/Not Resolved]
  - Hyperlipasaemia [Unknown]

NARRATIVE: CASE EVENT DATE: 20230707
